FAERS Safety Report 4910117-0 (Version None)
Quarter: 2006Q1

REPORT INFORMATION
  Report Type: 
  Country: None (occurrence: None)
  Receive Date: 20060209
  Receipt Date: 20060128
  Transmission Date: 20060701
  Serious: Yes (Other)
  Sender: FDA-Public Use
  Company Number: 2006005249

PATIENT
  Age: 45 Year
  Sex: Male

DRUGS (2)
  1. NEURONTIN [Suspect]
     Indication: SCIATICA
  2. VIOXX [Suspect]
     Indication: SCIATICA

REACTIONS (4)
  - ABDOMINAL DISTENSION [None]
  - ASTHENIA [None]
  - DRUG INEFFECTIVE [None]
  - FLUID RETENTION [None]
